FAERS Safety Report 14454412 (Version 2)
Quarter: 2018Q1

REPORT INFORMATION
  Report Type: Report from Study
  Country: US (occurrence: US)
  Receive Date: 20180129
  Receipt Date: 20180226
  Transmission Date: 20180509
  Serious: Yes (Life-Threatening, Other)
  Sender: FDA-Public Use
  Company Number: US-TEVA-2018-US-852233

PATIENT
  Age: 62 Year
  Sex: Female
  Weight: 79.4 kg

DRUGS (2)
  1. PF-06290510-PLACEBO [Suspect]
     Active Substance: INVESTIGATIONAL PRODUCT
     Indication: IMMUNISATION
     Dosage: SINGLE DOSE (320 MCG/VIAL)
     Route: 030
     Dates: start: 20171116
  2. ESTRACE [Suspect]
     Active Substance: ESTRADIOL
     Dosage: .5 MILLIGRAM DAILY;
     Route: 065

REACTIONS (2)
  - Pulmonary thrombosis [Recovering/Resolving]
  - Upper respiratory tract infection [Recovering/Resolving]

NARRATIVE: CASE EVENT DATE: 20171222
